FAERS Safety Report 23975593 (Version 1)
Quarter: 2024Q2

REPORT INFORMATION
  Report Type: Spontaneous
  Country: US (occurrence: US)
  Receive Date: 20240614
  Receipt Date: 20240614
  Transmission Date: 20240716
  Serious: No
  Sender: FDA-Public Use
  Company Number: US-UCBSA-2024025551

PATIENT
  Sex: Female

DRUGS (2)
  1. BIMZELX [Suspect]
     Active Substance: BIMEKIZUMAB-BKZX
     Indication: Psoriasis
     Dosage: 320 MILLIGRAM, EV 4 WEEKS AT WEEKS 0, 4, 8, 12 AND 16 AS DIRECTED
     Route: 058
     Dates: start: 202404
  2. BENZONATATE [Concomitant]
     Active Substance: BENZONATATE
     Indication: Product used for unknown indication
     Dosage: UNK

REACTIONS (2)
  - Oral infection [Unknown]
  - Asthma [Unknown]

NARRATIVE: CASE EVENT DATE: 20240101
